FAERS Safety Report 8198175-4 (Version None)
Quarter: 2012Q1

REPORT INFORMATION
  Report Type: 
  Country: None (occurrence: None)
  Receive Date: 20120309
  Receipt Date: 20111207
  Transmission Date: 20120608
  Serious: No
  Sender: FDA-Public Use
  Company Number: US-AMGEN-USASP2011065053

PATIENT
  Sex: Female

DRUGS (3)
  1. PROLIA [Suspect]
     Indication: OSTEOPOROSIS POSTMENOPAUSAL
     Dosage: UNK UNK, Q6MO
     Dates: start: 20110101
  2. CALCIUM [Concomitant]
     Dosage: 1 UNK, QD
  3. VITAMIN D [Concomitant]
     Dosage: 1 UNK, QD

REACTIONS (3)
  - MUSCLE SPASMS [None]
  - MIDDLE INSOMNIA [None]
  - PLANTAR FASCIITIS [None]
